FAERS Safety Report 11540568 (Version 1)
Quarter: 2015Q3

REPORT INFORMATION
  Report Type: Spontaneous
  Country: US (occurrence: US)
  Receive Date: 20150923
  Receipt Date: 20150923
  Transmission Date: 20151125
  Serious: No
  Sender: FDA-Public Use
  Company Number: US-BEH-2015050012

PATIENT
  Sex: Male
  Weight: 82 kg

DRUGS (25)
  1. DALIRESP [Concomitant]
     Active Substance: ROFLUMILAST
  2. NEUPRO [Concomitant]
     Active Substance: ROTIGOTINE
  3. PRIVIGEN [Suspect]
     Active Substance: HUMAN IMMUNOGLOBULIN G
     Route: 042
  4. EPIPEN [Concomitant]
     Active Substance: EPINEPHRINE
  5. ALDACTONE [Concomitant]
     Active Substance: SPIRONOLACTONE
  6. LANTUS [Concomitant]
     Active Substance: INSULIN GLARGINE
  7. WARFARIN [Concomitant]
     Active Substance: WARFARIN
  8. LMX [Concomitant]
     Active Substance: LIDOCAINE
  9. CHLORPHENIRAMINE. [Concomitant]
     Active Substance: CHLORPHENIRAMINE
  10. HERPARIN [Concomitant]
  11. NOVOLOG [Concomitant]
     Active Substance: INSULIN ASPART
  12. PRIVIGEN [Suspect]
     Active Substance: HUMAN IMMUNOGLOBULIN G
     Indication: CHRONIC INFLAMMATORY DEMYELINATING POLYRADICULONEUROPATHY
     Route: 042
     Dates: start: 20150216, end: 20150308
  13. VITAMIN B12 (CYANOCOBALAMIN AND ANALOGUES) [Concomitant]
  14. ACETAMINOPHEN. [Concomitant]
     Active Substance: ACETAMINOPHEN
  15. FUROSEMIDE. [Concomitant]
     Active Substance: FUROSEMIDE
  16. AMIODARONE [Concomitant]
     Active Substance: AMIODARONE
  17. ASPIRIN. [Concomitant]
     Active Substance: ASPIRIN
  18. OXYGEN. [Concomitant]
     Active Substance: OXYGEN
  19. LASIX [Concomitant]
     Active Substance: FUROSEMIDE
  20. DIPHENHYDRAMINE. [Concomitant]
     Active Substance: DIPHENHYDRAMINE
  21. COREG [Concomitant]
     Active Substance: CARVEDILOL
  22. ZOLPIDEM [Concomitant]
     Active Substance: ZOLPIDEM\ZOLPIDEM TARTRATE
  23. VENTOLIN [Concomitant]
     Active Substance: ALBUTEROL SULFATE
  24. SODIUM CHLORIDE. [Concomitant]
     Active Substance: SODIUM CHLORIDE
  25. LOSARTAN. [Concomitant]
     Active Substance: LOSARTAN

REACTIONS (1)
  - Rash [Unknown]
